FAERS Safety Report 9952792 (Version 1)
Quarter: 2014Q1

REPORT INFORMATION
  Report Type: Report from Study
  Country: US (occurrence: US)
  Receive Date: 20140304
  Receipt Date: 20140304
  Transmission Date: 20141002
  Serious: No
  Sender: FDA-Public Use
  Company Number: US-ABBVIE-13P-163-1074525-00

PATIENT
  Age: 61 Year
  Sex: Female

DRUGS (7)
  1. HUMIRA [Suspect]
     Indication: CROHN^S DISEASE
     Dosage: LOADING DOSE
     Dates: start: 20130326
  2. ALLEGRA [Concomitant]
     Indication: HYPERSENSITIVITY
  3. PLAQUENIL [Concomitant]
     Indication: SYSTEMIC LUPUS ERYTHEMATOSUS
  4. ULTRAM [Concomitant]
     Indication: SYSTEMIC LUPUS ERYTHEMATOSUS
  5. ULTRAM [Concomitant]
     Indication: PAIN
  6. EFFEXOR [Concomitant]
     Indication: CROHN^S DISEASE
  7. VITAMIN D [Concomitant]
     Indication: VITAMIN SUPPLEMENTATION

REACTIONS (1)
  - Injection site bruising [Recovering/Resolving]
